FAERS Safety Report 5719758-4 (Version None)
Quarter: 2008Q2

REPORT INFORMATION
  Report Type: 
  Country: None (occurrence: None)
  Receive Date: 20080428
  Receipt Date: 20080422
  Transmission Date: 20081010
  Serious: Yes (Death, Hospitalization)
  Sender: FDA-Public Use
  Company Number: FR-TEVA-168834ISR

PATIENT
  Age: 77 Year
  Sex: Female

DRUGS (7)
  1. DOXORUBICIN HCL [Suspect]
     Indication: NON-HODGKIN'S LYMPHOMA
     Dates: end: 20050608
  2. VINCRISTINE [Suspect]
     Indication: NON-HODGKIN'S LYMPHOMA
     Dates: end: 20050608
  3. PREDNISONE [Suspect]
     Indication: NON-HODGKIN'S LYMPHOMA
     Dates: end: 20050608
  4. CYCLOPHOSPHAMIDE [Suspect]
     Indication: NON-HODGKIN'S LYMPHOMA
     Dates: end: 20050608
  5. RITUXIMAB [Suspect]
     Indication: NON-HODGKIN'S LYMPHOMA
     Dates: end: 20050608
  6. VALACYCLOVIR [Concomitant]
  7. BACTRIM [Concomitant]

REACTIONS (1)
  - HEPATITIS B VIRUS [None]
